FAERS Safety Report 13593975 (Version 2)
Quarter: 2017Q2

REPORT INFORMATION
  Report Type: Spontaneous
  Country: CA (occurrence: CA)
  Receive Date: 20170530
  Receipt Date: 20170609
  Transmission Date: 20170830
  Serious: Yes (Death)
  Sender: FDA-Public Use
  Company Number: CA-FRESENIUS MEDICAL CARE RENAL THERAPIES GROUP-FMC-1705-000583

PATIENT
  Age: 59 Year
  Sex: Male

DRUGS (8)
  1. FLUDOCORTISONE [Concomitant]
  2. REPAGLINIDE. [Concomitant]
     Active Substance: REPAGLINIDE
  3. ASA [Concomitant]
     Active Substance: ASPIRIN
  4. PLAVIX [Concomitant]
     Active Substance: CLOPIDOGREL BISULFATE
  5. LASIX [Concomitant]
     Active Substance: FUROSEMIDE
  6. 0.9% SODIUM CHLORIDE INJECTION [Suspect]
     Active Substance: SODIUM CHLORIDE
     Indication: END STAGE RENAL DISEASE
     Route: 042
  7. DARBEPOETIN [Concomitant]
     Active Substance: DARBEPOETIN ALFA
  8. METOPROLOL. [Concomitant]
     Active Substance: METOPROLOL

REACTIONS (1)
  - Sepsis [Fatal]

NARRATIVE: CASE EVENT DATE: 20170428
